FAERS Safety Report 6734293-2 (Version None)
Quarter: 2010Q2

REPORT INFORMATION
  Report Type: 
  Country: None (occurrence: None)
  Receive Date: 20100520
  Receipt Date: 20100513
  Transmission Date: 20101027
  Serious: Yes (Other)
  Sender: FDA-Public Use
  Company Number: JP-ABBOTT-10P-087-0632532-00

PATIENT
  Sex: Male
  Weight: 55.5 kg

DRUGS (1)
  1. HUMIRA [Suspect]
     Indication: RHEUMATOID ARTHRITIS
     Route: 058
     Dates: start: 20090918, end: 20091016

REACTIONS (1)
  - CERVICAL MYELOPATHY [None]
